FAERS Safety Report 4704037-4 (Version None)
Quarter: 2005Q2

REPORT INFORMATION
  Report Type: 
  Country: None (occurrence: None)
  Receive Date: 20050628
  Receipt Date: 20050614
  Transmission Date: 20051028
  Serious: Yes (Other)
  Sender: FDA-Public Use
  Company Number: USA0506100497

PATIENT
  Sex: Female

DRUGS (2)
  1. FORTEO [Suspect]
  2. FOSAMAX [Concomitant]

REACTIONS (4)
  - BONE FORMATION INCREASED [None]
  - EXTRASKELETAL OSSIFICATION [None]
  - FRACTURE [None]
  - POST PROCEDURAL COMPLICATION [None]
